FAERS Safety Report 12437999 (Version 1)
Quarter: 2016Q2

REPORT INFORMATION
  Report Type: Spontaneous
  Country: BR (occurrence: BR)
  Receive Date: 20160606
  Receipt Date: 20160606
  Transmission Date: 20160815
  Serious: Yes (Other)
  Sender: FDA-Public Use
  Company Number: BR-PFIZER INC-2016282728

PATIENT
  Sex: Male

DRUGS (1)
  1. DOSTINEX [Suspect]
     Active Substance: CABERGOLINE
     Indication: NEOPLASM
     Dosage: UNK
     Route: 048
     Dates: start: 2014

REACTIONS (4)
  - Product use issue [Unknown]
  - Nausea [Not Recovered/Not Resolved]
  - Brain neoplasm [Unknown]
  - Headache [Not Recovered/Not Resolved]

NARRATIVE: CASE EVENT DATE: 2014
